FAERS Safety Report 5170300-9 (Version None)
Quarter: 2006Q4

REPORT INFORMATION
  Report Type: 
  Country: None (occurrence: None)
  Receive Date: 20061204
  Receipt Date: 20061123
  Transmission Date: 20070319
  Serious: Yes (Hospitalization)
  Sender: FDA-Public Use
  Company Number: GXKR2006PL07591

PATIENT
  Age: 15 Year
  Sex: Male

DRUGS (1)
  1. CEFUROXIME AXETIL [Suspect]
     Indication: TONSILLITIS
     Dosage: 500 MG, ORAL
     Route: 048
     Dates: start: 20060812, end: 20060812

REACTIONS (6)
  - ANAPHYLACTIC SHOCK [None]
  - HAEMODYNAMIC INSTABILITY [None]
  - OCULAR HYPERAEMIA [None]
  - PYREXIA [None]
  - TREMOR [None]
  - VISION BLURRED [None]
